FAERS Safety Report 4493833-7 (Version None)
Quarter: 2004Q4

REPORT INFORMATION
  Report Type: 
  Country: None (occurrence: None)
  Receive Date: 20041102
  Receipt Date: 20041019
  Transmission Date: 20050328
  Serious: Yes (Other)
  Sender: FDA-Public Use
  Company Number: 2004239404BR

PATIENT
  Sex: Female

DRUGS (1)
  1. BEXTRA [Suspect]
     Indication: NECK PAIN
     Dosage: 40 MG, SINGLE, ORAL
     Route: 048
     Dates: start: 20030721, end: 20030725

REACTIONS (3)
  - DRUG INEFFECTIVE [None]
  - ERYTHEMA MULTIFORME [None]
  - RASH PRURITIC [None]
